FAERS Safety Report 20847161 (Version 2)
Quarter: 2022Q3

REPORT INFORMATION
  Report Type: Spontaneous
  Country: JP (occurrence: JP)
  Receive Date: 20220519
  Receipt Date: 20220727
  Transmission Date: 20221026
  Serious: Yes (Life-Threatening, Hospitalization, Other)
  Sender: FDA-Public Use
  Company Number: JP-NOVOPROD-918422

PATIENT
  Sex: Female

DRUGS (16)
  1. RYBELSUS [Suspect]
     Active Substance: SEMAGLUTIDE
     Indication: Diabetes mellitus
     Dosage: 3 MG, QD
     Route: 048
     Dates: start: 20220411, end: 20220427
  2. AMARYL [Concomitant]
     Active Substance: GLIMEPIRIDE
     Indication: Diabetes mellitus
     Dosage: 1 MG, QD
     Route: 048
  3. METFORMIN HYDROCHLORIDE [Concomitant]
     Active Substance: METFORMIN HYDROCHLORIDE
     Indication: Diabetes mellitus
     Dosage: 250 MG, QD
     Route: 048
     Dates: start: 20180213
  4. ROSUVASTATIN [Concomitant]
     Active Substance: ROSUVASTATIN
     Indication: Dyslipidaemia
     Dosage: 2.5 MG, QD
     Route: 048
  5. TELMISARTAN HYDROCHLOROTHIAZIDE TEVA [Concomitant]
     Indication: Hypertension
     Dosage: 1 DF
     Route: 048
     Dates: start: 20190315
  6. CILNIDIPINE [Concomitant]
     Active Substance: CILNIDIPINE
     Indication: Hypertension
     Dosage: 5 MG, QD
     Route: 048
     Dates: start: 20210116
  7. PREDONINE [Concomitant]
     Active Substance: PREDNISOLONE
     Indication: Systemic lupus erythematosus
     Dosage: 10 MG, QD
     Route: 048
  8. FEBUXOSTAT [Concomitant]
     Active Substance: FEBUXOSTAT
     Indication: Systemic lupus erythematosus
     Dosage: 10 MG, QD
     Route: 048
  9. LOXOPROFEN SODIUM [Concomitant]
     Active Substance: LOXOPROFEN SODIUM
     Indication: Systemic lupus erythematosus
     Dosage: 180 MG, TID
     Route: 048
     Dates: end: 202204
  10. ELDECALCITOL [Concomitant]
     Active Substance: ELDECALCITOL
     Indication: Systemic lupus erythematosus
     Dosage: 0.7 MCG QD
     Route: 048
  11. OMEPRAZOLE [Concomitant]
     Active Substance: OMEPRAZOLE
     Indication: Systemic lupus erythematosus
     Dosage: 20 MG, QD
     Route: 048
     Dates: end: 20220428
  12. TACROLIMUS [Concomitant]
     Active Substance: TACROLIMUS
     Indication: Systemic lupus erythematosus
     Dosage: 2 MG, QD
     Route: 048
  13. DULOXETINE [Concomitant]
     Active Substance: DULOXETINE
     Indication: Depression
     Dosage: 40 MG, QD
     Route: 048
     Dates: start: 202201
  14. SOLANAX [Concomitant]
     Active Substance: ALPRAZOLAM
     Indication: Depression
     Dosage: 0.8 MG, BID
     Route: 048
     Dates: start: 202201
  15. TRAZODONE [Concomitant]
     Active Substance: TRAZODONE HYDROCHLORIDE
     Indication: Depression
     Dosage: 50 MG, QD
     Route: 048
     Dates: start: 201101
  16. CALONAL [Concomitant]
     Active Substance: ACETAMINOPHEN
     Indication: Spinal compression fracture
     Dosage: 1200 MG, TID
     Route: 048
     Dates: start: 202204

REACTIONS (2)
  - Large intestine perforation [Recovered/Resolved]
  - Peritonitis [Recovered/Resolved]

NARRATIVE: CASE EVENT DATE: 20220428
